FAERS Safety Report 22535960 (Version 1)
Quarter: 2023Q2

REPORT INFORMATION
  Report Type: Spontaneous
  Country: VN (occurrence: VN)
  Receive Date: 20230608
  Receipt Date: 20230608
  Transmission Date: 20230722
  Serious: Yes (Other)
  Sender: FDA-Public Use
  Company Number: VN-FreseniusKabi-FK202307713

PATIENT
  Sex: Female
  Weight: 60 kg

DRUGS (1)
  1. PROPOFOL [Suspect]
     Active Substance: PROPOFOL
     Indication: Anaesthesia
     Dosage: DAILY DOSE: 20ML/ TIME; 2 TIMES
     Route: 042
     Dates: start: 20230526, end: 20230526

REACTIONS (2)
  - Respiratory failure [Recovered/Resolved with Sequelae]
  - Hiccups [Recovered/Resolved with Sequelae]

NARRATIVE: CASE EVENT DATE: 20230526
